FAERS Safety Report 25754228 (Version 1)
Quarter: 2025Q3

REPORT INFORMATION
  Report Type: Spontaneous
  Country: US (occurrence: US)
  Receive Date: 20250903
  Receipt Date: 20250903
  Transmission Date: 20251020
  Serious: Yes (Other)
  Sender: ALEXION PHARMACEUTICALS
  Company Number: US-AstraZeneca-CH-00940419A

PATIENT
  Sex: Male

DRUGS (2)
  1. FASENRA [Suspect]
     Active Substance: BENRALIZUMAB
     Route: 065
  2. FASENRA [Suspect]
     Active Substance: BENRALIZUMAB

REACTIONS (9)
  - Blindness [Unknown]
  - Memory impairment [Unknown]
  - Visual impairment [Unknown]
  - Vision blurred [Unknown]
  - Vitreous floaters [Unknown]
  - Eye disorder [Unknown]
  - Productive cough [Unknown]
  - Product physical issue [Unknown]
  - Accidental exposure to product [Unknown]
